FAERS Safety Report 6087878-3 (Version None)
Quarter: 2009Q1

REPORT INFORMATION
  Report Type: 
  Country: None (occurrence: None)
  Receive Date: 20090223
  Receipt Date: 20090218
  Transmission Date: 20090719
  Serious: Yes (Other)
  Sender: FDA-Public Use
  Company Number: US-B.I. PHARMACEUTICALS,INC./RIDGEFIELD-2009-BP-02066BP

PATIENT
  Age: 60 Year
  Sex: Female

DRUGS (7)
  1. SPIRIVA [Suspect]
     Indication: CHRONIC OBSTRUCTIVE PULMONARY DISEASE
     Dosage: 18MCG
     Route: 055
     Dates: start: 20050101
  2. SPIRIVA [Suspect]
     Indication: EMPHYSEMA
  3. ADVAIR DISKUS 100/50 [Concomitant]
     Indication: CHRONIC OBSTRUCTIVE PULMONARY DISEASE
     Route: 055
     Dates: start: 20000101
  4. ADVAIR DISKUS 100/50 [Concomitant]
     Indication: EMPHYSEMA
  5. HYDROCODONE [Concomitant]
     Indication: PAIN
     Route: 048
  6. HYDROCODONE [Concomitant]
     Indication: ARTHRITIS
  7. OTHER PAIN MEDICATIONS [Concomitant]

REACTIONS (1)
  - LUNG NEOPLASM MALIGNANT [None]
